FAERS Safety Report 15636285 (Version 1)
Quarter: 2018Q4

REPORT INFORMATION
  Report Type: Spontaneous
  Country: US (occurrence: US)
  Receive Date: 20181120
  Receipt Date: 20181120
  Transmission Date: 20190205
  Serious: No
  Sender: FDA-Public Use
  Company Number: US-GLENMARK PHARMACEUTICALS-2018GMK037281

PATIENT

DRUGS (2)
  1. ZOLMITRIPTAN TABLETS, 5 MG [Suspect]
     Active Substance: ZOLMITRIPTAN
     Dosage: UNK
     Route: 065
  2. ZOLMITRIPTAN TABLETS, 5 MG [Suspect]
     Active Substance: ZOLMITRIPTAN
     Indication: MIGRAINE
     Dosage: 5 MG, ALMOST EVERY DAY (YEARS AGO)
     Route: 065

REACTIONS (1)
  - Drug effect delayed [Unknown]
